FAERS Safety Report 25099732 (Version 1)
Quarter: 2025Q1

REPORT INFORMATION
  Report Type: Spontaneous
  Country: PT (occurrence: PT)
  Receive Date: 20250320
  Receipt Date: 20250320
  Transmission Date: 20250408
  Serious: Yes (Other)
  Sender: CHEPLAPHARM
  Company Number: PT-ROCHE-10000224943

PATIENT
  Age: 55 Year
  Sex: Female

DRUGS (18)
  1. CAPECITABINE [Suspect]
     Active Substance: CAPECITABINE
     Dosage: ON DAY 1 TO 14 OF EACH 21 DAY CYCLE?DAILY DOSE: 2000 MILLIGRAM
     Route: 048
     Dates: start: 202311, end: 202410
  2. TRASTUZUMAB [Suspect]
     Active Substance: TRASTUZUMAB
     Indication: Breast cancer metastatic
     Dates: start: 201908, end: 202001
  3. TRASTUZUMAB [Suspect]
     Active Substance: TRASTUZUMAB
     Indication: Nausea
     Dates: start: 201908, end: 202001
  4. TRASTUZUMAB [Suspect]
     Active Substance: TRASTUZUMAB
     Indication: Dry mouth
     Dates: start: 201908, end: 202001
  5. TRASTUZUMAB [Suspect]
     Active Substance: TRASTUZUMAB
     Indication: Diarrhoea
     Dates: start: 201908, end: 202001
  6. TRASTUZUMAB [Suspect]
     Active Substance: TRASTUZUMAB
     Indication: Breast cancer metastatic
     Dates: start: 202011
  7. TRASTUZUMAB [Suspect]
     Active Substance: TRASTUZUMAB
     Indication: Nausea
     Dates: start: 202011
  8. TRASTUZUMAB [Suspect]
     Active Substance: TRASTUZUMAB
     Indication: Dry mouth
     Dates: start: 202011
  9. TRASTUZUMAB [Suspect]
     Active Substance: TRASTUZUMAB
     Indication: Diarrhoea
     Dates: start: 202011
  10. TRASTUZUMAB [Suspect]
     Active Substance: TRASTUZUMAB
     Indication: Breast cancer metastatic
     Dates: start: 202208, end: 202307
  11. TRASTUZUMAB [Suspect]
     Active Substance: TRASTUZUMAB
     Indication: Nausea
     Dates: start: 202208, end: 202307
  12. TRASTUZUMAB [Suspect]
     Active Substance: TRASTUZUMAB
     Indication: Dry mouth
     Dates: start: 202208, end: 202307
  13. TRASTUZUMAB [Suspect]
     Active Substance: TRASTUZUMAB
     Indication: Diarrhoea
     Dates: start: 202208, end: 202307
  14. TRASTUZUMAB [Suspect]
     Active Substance: TRASTUZUMAB
     Indication: Breast cancer metastatic
     Dates: start: 202311, end: 202410
  15. TRASTUZUMAB [Suspect]
     Active Substance: TRASTUZUMAB
     Indication: Nausea
     Dates: start: 202311, end: 202410
  16. TRASTUZUMAB [Suspect]
     Active Substance: TRASTUZUMAB
     Indication: Dry mouth
     Dates: start: 202311, end: 202410
  17. TRASTUZUMAB [Suspect]
     Active Substance: TRASTUZUMAB
     Indication: Diarrhoea
     Dates: start: 202311, end: 202410
  18. TUKYSA [Suspect]
     Active Substance: TUCATINIB
     Dosage: DAILY DOSE: 600 MILLIGRAM
     Route: 048
     Dates: start: 202311, end: 202410

REACTIONS (3)
  - Brain cancer metastatic [Unknown]
  - Palmar-plantar erythrodysaesthesia syndrome [Unknown]
  - Diarrhoea [Unknown]

NARRATIVE: CASE EVENT DATE: 20241001
